FAERS Safety Report 16713398 (Version 2)
Quarter: 2019Q3

REPORT INFORMATION
  Report Type: Report from Study
  Country: None (occurrence: US)
  Receive Date: 20190818
  Receipt Date: 20190923
  Transmission Date: 20191004
  Serious: Yes (Other)
  Sender: FDA-Public Use
  Company Number: US-ABBVIE-19K-163-2887070-00

PATIENT
  Age: 52 Year
  Sex: Female

DRUGS (1)
  1. HUMIRA [Suspect]
     Active Substance: ADALIMUMAB
     Indication: HIDRADENITIS
     Route: 058

REACTIONS (6)
  - Intervertebral disc protrusion [Recovering/Resolving]
  - Nerve compression [Unknown]
  - Tremor [Recovering/Resolving]
  - Fall [Recovering/Resolving]
  - Grip strength decreased [Recovering/Resolving]
  - Ankle fracture [Recovered/Resolved]

NARRATIVE: CASE EVENT DATE: 20190706
